FAERS Safety Report 7603624-3 (Version None)
Quarter: 2011Q3

REPORT INFORMATION
  Report Type: 
  Country: None (occurrence: None)
  Receive Date: 20110711
  Receipt Date: 20110711
  Transmission Date: 20111222
  Serious: Yes (Other)
  Sender: FDA-Public Use
  Company Number: None

PATIENT
  Age: 47 Year
  Sex: Female
  Weight: 61.2356 kg

DRUGS (1)
  1. CETIRIZINE [Suspect]
     Indication: MULTIPLE ALLERGIES
     Dosage: 1 10MG PILL ONCE PER DAY PO
     Route: 048
     Dates: start: 20110605, end: 20110707

REACTIONS (4)
  - WITHDRAWAL SYNDROME [None]
  - DRUG DEPENDENCE [None]
  - DRUG DOSE OMISSION [None]
  - PRURITUS [None]
